FAERS Safety Report 12630035 (Version 1)
Quarter: 2016Q3

REPORT INFORMATION
  Report Type: Spontaneous
  Country: US (occurrence: US)
  Receive Date: 20160808
  Receipt Date: 20160808
  Transmission Date: 20161109
  Serious: Yes (Death, Other)
  Sender: FDA-Public Use
  Company Number: US-BRISTOL-MYERS SQUIBB COMPANY-BMS-2016-063281

PATIENT
  Sex: Female

DRUGS (3)
  1. YERVOY [Suspect]
     Active Substance: IPILIMUMAB
     Dosage: 243.3 MG, Q3WK
     Route: 065
     Dates: start: 20150416
  2. YERVOY [Suspect]
     Active Substance: IPILIMUMAB
     Dosage: 243.3 MG, Q3WK
     Route: 065
     Dates: start: 20150521
  3. YERVOY [Suspect]
     Active Substance: IPILIMUMAB
     Indication: METASTATIC MALIGNANT MELANOMA
     Dosage: 243.3 MG, Q3WK
     Route: 065
     Dates: start: 20150220

REACTIONS (1)
  - Death [Fatal]
